FAERS Safety Report 9395753 (Version 1)
Quarter: 2013Q3

REPORT INFORMATION
  Report Type: Spontaneous
  Country: US (occurrence: US)
  Receive Date: 20130711
  Receipt Date: 20130711
  Transmission Date: 20140515
  Serious: No
  Sender: FDA-Public Use
  Company Number: US-TEVA-416016USA

PATIENT
  Age: 64 Year
  Sex: Female
  Weight: 70.37 kg

DRUGS (5)
  1. PROAIR HFA [Suspect]
     Indication: ASTHMA
     Dates: start: 20130622, end: 20130622
  2. ATORVASTATIN [Concomitant]
     Indication: BLOOD CHOLESTEROL
  3. PREVACID [Concomitant]
     Indication: GASTRIC DISORDER
  4. IRBESARTAN [Concomitant]
  5. FLOVENT [Concomitant]
     Indication: ASTHMA

REACTIONS (2)
  - Glossodynia [Recovering/Resolving]
  - Glossodynia [Recovering/Resolving]
